FAERS Safety Report 19092043 (Version 1)
Quarter: 2021Q2

REPORT INFORMATION
  Report Type: Spontaneous
  Country: DE (occurrence: DE)
  Receive Date: 20210405
  Receipt Date: 20210405
  Transmission Date: 20210717
  Serious: Yes (Death, Hospitalization)
  Sender: FDA-Public Use
  Company Number: DE-TEVA-2021-DE-1897216

PATIENT
  Age: 74 Year
  Sex: Male

DRUGS (12)
  1. METOPROLOL. [Concomitant]
     Active Substance: METOPROLOL
     Dosage: 95 MILLIGRAM DAILY; 1?0?1?0
  2. PREDNISOLON [Suspect]
     Active Substance: PREDNISOLONE
     Route: 065
  3. ALLOPURINOL. [Concomitant]
     Active Substance: ALLOPURINOL
     Dosage: 300 MILLIGRAM DAILY; 1?0?0?0,
  4. GEMCITABINE. [Suspect]
     Active Substance: GEMCITABINE
     Route: 065
  5. ATORVASTATIN [Concomitant]
     Active Substance: ATORVASTATIN
     Dosage: 80 MILLIGRAM DAILY; 0?0?1?0,
  6. RIVAROXABAN [Concomitant]
     Active Substance: RIVAROXABAN
     Dosage: 20 MILLIGRAM DAILY; 1?0?0?0,
  7. METAMIZOL [Concomitant]
     Active Substance: METAMIZOLE SODIUM
     Dosage: REQUIRES UP TO 4X40, DROPS
  8. PANTOPRAZOL [Concomitant]
     Active Substance: PANTOPRAZOLE SODIUM
     Dosage: 40 MILLIGRAM DAILY; 1?0?0?0,
  9. DIGITOXIN [Concomitant]
     Active Substance: DIGITOXIN
     Dosage: 0.1 MG, NEW FROM 18122020 SO PAUS
  10. TORASEMID [Concomitant]
     Active Substance: TORSEMIDE
     Dosage: 1 DOSAGE FORMS DAILY; 10 MG, REQUIREMENT 0.5?0.5?0?0,
  11. ULTIBRO BREEZHALER 85MIKROGRAMM/43MIKROGRAMM [Concomitant]
     Dosage: 1 DOSAGE FORMS DAILY; 1?0?0?0,
     Route: 055
  12. GLIMEPIRID [Concomitant]
     Active Substance: GLIMEPIRIDE
     Dosage: 1.5 DOSAGE FORMS DAILY; 2 MG, 1.5?0?0?0,

REACTIONS (4)
  - General physical health deterioration [Unknown]
  - Dyspnoea exertional [Unknown]
  - Anaemia [Unknown]
  - Oedema peripheral [Unknown]
